FAERS Safety Report 15966126 (Version 1)
Quarter: 2019Q1

REPORT INFORMATION
  Report Type: Spontaneous
  Country: TN (occurrence: TN)
  Receive Date: 20190215
  Receipt Date: 20190215
  Transmission Date: 20190418
  Serious: Yes (Other)
  Sender: FDA-Public Use
  Company Number: TN-STRIDES ARCOLAB LIMITED-2019SP001292

PATIENT
  Age: 44 Year
  Sex: Male

DRUGS (2)
  1. MELOXICAM. [Suspect]
     Active Substance: MELOXICAM
     Indication: PRODUCT USED FOR UNKNOWN INDICATION
     Dosage: 15 MG DAILY-DOSE, FIRST DAYFULL DOSE IN THREE STEPS (5 MG EACH STEP) AND OTHER TWO DAYS FULL DOSE
     Route: 048
  2. PIROXICAM. [Suspect]
     Active Substance: PIROXICAM
     Indication: PRODUCT USED FOR UNKNOWN INDICATION
     Dosage: UNK
     Route: 065

REACTIONS (4)
  - Skin hyperpigmentation [Unknown]
  - Fixed eruption [Unknown]
  - Skin plaque [Unknown]
  - Therapeutic product cross-reactivity [Unknown]
